FAERS Safety Report 11460113 (Version 1)
Quarter: 2015Q3

REPORT INFORMATION
  Report Type: Report from Study
  Country: CA (occurrence: CA)
  Receive Date: 20150904
  Receipt Date: 20150904
  Transmission Date: 20151125
  Serious: Yes (Other)
  Sender: FDA-Public Use
  Company Number: CA-CELGENE-028-21880-14075123

PATIENT
  Age: 62 Year
  Sex: Female
  Weight: 60 kg

DRUGS (33)
  1. RITUXIMAB [Suspect]
     Active Substance: RITUXIMAB
     Indication: B-CELL LYMPHOMA
     Route: 041
     Dates: start: 20140627, end: 20140711
  2. VITAMIN C [Concomitant]
     Active Substance: ASCORBIC ACID
     Indication: CAPILLARITIS
  3. ATIVAN [Concomitant]
     Active Substance: LORAZEPAM
     Indication: ANXIETY
     Dosage: 500 MILLIGRAM
     Route: 048
     Dates: start: 20140718
  4. RANITIDINE [Concomitant]
     Active Substance: RANITIDINE\RANITIDINE HYDROCHLORIDE
     Indication: ANXIETY
     Dosage: 1000 MILLIGRAM
     Route: 048
     Dates: start: 20140723, end: 20140817
  5. MELATONIN [Concomitant]
     Active Substance: MELATONIN
     Indication: INSOMNIA
     Route: 065
     Dates: start: 201406
  6. RANITIDINE [Concomitant]
     Active Substance: RANITIDINE\RANITIDINE HYDROCHLORIDE
     Indication: HYPERSENSITIVITY VASCULITIS
  7. METOCLOPRAMIDE. [Concomitant]
     Active Substance: METOCLOPRAMIDE
     Indication: HYPERSENSITIVITY VASCULITIS
  8. MELATONIN [Concomitant]
     Active Substance: MELATONIN
     Indication: HYPERSENSITIVITY VASCULITIS
  9. MELATONIN [Concomitant]
     Active Substance: MELATONIN
     Indication: CAPILLARITIS
  10. VITAMIN D [Concomitant]
     Active Substance: CHOLECALCIFEROL
     Indication: SUPPLEMENTATION THERAPY
     Route: 065
     Dates: start: 201406
  11. VITAMIN B [Concomitant]
     Active Substance: VITAMIN B
     Indication: HYPERSENSITIVITY VASCULITIS
  12. MACROBID [Concomitant]
     Active Substance: NITROFURANTOIN\NITROFURANTOIN MONOHYDRATE
     Indication: URINARY TRACT INFECTION
     Dosage: 10 MILLIGRAM
     Route: 065
     Dates: start: 20140713, end: 20140714
  13. OXAZEPAM. [Concomitant]
     Active Substance: OXAZEPAM
     Indication: PRODUCT USED FOR UNKNOWN INDICATION
     Dosage: 50 MILLIGRAM
     Route: 065
  14. OXAZEPAM. [Concomitant]
     Active Substance: OXAZEPAM
     Indication: HYPERSENSITIVITY VASCULITIS
  15. OXAZEPAM. [Concomitant]
     Active Substance: OXAZEPAM
     Indication: CAPILLARITIS
  16. METOCLOPRAMIDE. [Concomitant]
     Active Substance: METOCLOPRAMIDE
     Indication: CAPILLARITIS
  17. POLYETHYLENE GLYCOL [Concomitant]
     Active Substance: POLYETHYLENE GLYCOLS
     Indication: HYPERSENSITIVITY VASCULITIS
  18. VITAMIN C [Concomitant]
     Active Substance: ASCORBIC ACID
     Indication: SUPPLEMENTATION THERAPY
     Route: 065
     Dates: start: 201406
  19. VITAMIN C [Concomitant]
     Active Substance: ASCORBIC ACID
     Indication: HYPERSENSITIVITY VASCULITIS
  20. VITAMIN D [Concomitant]
     Active Substance: CHOLECALCIFEROL
     Indication: CAPILLARITIS
  21. MACROBID [Concomitant]
     Active Substance: NITROFURANTOIN\NITROFURANTOIN MONOHYDRATE
     Indication: CAPILLARITIS
  22. ATIVAN [Concomitant]
     Active Substance: LORAZEPAM
     Indication: CAPILLARITIS
  23. RITUXIMAB [Suspect]
     Active Substance: RITUXIMAB
     Route: 065
     Dates: start: 20140725
  24. VITAMIN D [Concomitant]
     Active Substance: CHOLECALCIFEROL
     Indication: HYPERSENSITIVITY VASCULITIS
  25. VITAMIN B [Concomitant]
     Active Substance: VITAMIN B
     Indication: SUPPLEMENTATION THERAPY
     Route: 065
     Dates: start: 201406
  26. VITAMIN B [Concomitant]
     Active Substance: VITAMIN B
     Indication: CAPILLARITIS
  27. POLYETHYLENE GLYCOL [Concomitant]
     Active Substance: POLYETHYLENE GLYCOLS
     Indication: CONSTIPATION
     Dosage: 10 MILLIGRAM
     Route: 065
     Dates: start: 20140713
  28. POLYETHYLENE GLYCOL [Concomitant]
     Active Substance: POLYETHYLENE GLYCOLS
     Indication: CAPILLARITIS
  29. RANITIDINE [Concomitant]
     Active Substance: RANITIDINE\RANITIDINE HYDROCHLORIDE
     Indication: CAPILLARITIS
  30. REVLIMID [Suspect]
     Active Substance: LENALIDOMIDE
     Indication: B-CELL LYMPHOMA
     Dosage: 20 MILLIGRAM
     Route: 048
     Dates: start: 20140628, end: 20140710
  31. METOCLOPRAMIDE. [Concomitant]
     Active Substance: METOCLOPRAMIDE
     Indication: NAUSEA
     Route: 065
     Dates: start: 201406
  32. MACROBID [Concomitant]
     Active Substance: NITROFURANTOIN\NITROFURANTOIN MONOHYDRATE
     Indication: HYPERSENSITIVITY VASCULITIS
  33. ATIVAN [Concomitant]
     Active Substance: LORAZEPAM
     Indication: HYPERSENSITIVITY VASCULITIS

REACTIONS (2)
  - Hypersensitivity vasculitis [Recovered/Resolved]
  - Capillaritis [Recovered/Resolved]

NARRATIVE: CASE EVENT DATE: 20140716
